FAERS Safety Report 10330286 (Version 7)
Quarter: 2015Q4

REPORT INFORMATION
  Report Type: Spontaneous
  Country: CA (occurrence: CA)
  Receive Date: 20140722
  Receipt Date: 20151203
  Transmission Date: 20160304
  Serious: Yes (Hospitalization, Other)
  Sender: FDA-Public Use
  Company Number: CA-ROCHE-1434875

PATIENT
  Age: 56 Year
  Sex: Male

DRUGS (7)
  1. NEXIUM [Concomitant]
     Active Substance: ESOMEPRAZOLE MAGNESIUM
  2. XOLAIR [Suspect]
     Active Substance: OMALIZUMAB
     Route: 058
     Dates: start: 20140401
  3. XOLAIR [Suspect]
     Active Substance: OMALIZUMAB
     Route: 058
     Dates: start: 20130501
  4. XOLAIR [Suspect]
     Active Substance: OMALIZUMAB
     Indication: ASTHMA
     Route: 058
     Dates: start: 20121023
  5. XOLAIR [Suspect]
     Active Substance: OMALIZUMAB
     Route: 058
     Dates: start: 20130417
  6. XOLAIR [Suspect]
     Active Substance: OMALIZUMAB
     Route: 058
     Dates: start: 20140820
  7. ZANTAC [Concomitant]
     Active Substance: RANITIDINE HYDROCHLORIDE

REACTIONS (26)
  - Gastrointestinal haemorrhage [Unknown]
  - Choking [Unknown]
  - Fatigue [Unknown]
  - Depression [Unknown]
  - Heart rate increased [Unknown]
  - Sputum discoloured [Unknown]
  - Pyrexia [Unknown]
  - Cough [Unknown]
  - Malaise [Unknown]
  - Arthritis [Unknown]
  - Blood pressure systolic increased [Unknown]
  - Cholelithiasis [Unknown]
  - Sleep apnoea syndrome [Unknown]
  - Nodule [Unknown]
  - Polyp [Unknown]
  - Pain [Unknown]
  - Sinus congestion [Unknown]
  - Overdose [Unknown]
  - Lipoma [Unknown]
  - Nasopharyngitis [Unknown]
  - Gastroenteritis viral [Unknown]
  - Dyspnoea [Unknown]
  - Weight decreased [Not Recovered/Not Resolved]
  - Pruritus [Unknown]
  - Hypokinesia [Unknown]
  - Lower respiratory tract infection [Recovered/Resolved]

NARRATIVE: CASE EVENT DATE: 20121025
